FAERS Safety Report 21117661 (Version 1)
Quarter: 2022Q3

REPORT INFORMATION
  Report Type: Report from Study
  Country: CA (occurrence: CA)
  Receive Date: 20220722
  Receipt Date: 20220722
  Transmission Date: 20221027
  Serious: Yes (Other)
  Sender: FDA-Public Use
  Company Number: CA-ABBVIE-20K-028-3573550-00

PATIENT
  Sex: Male
  Weight: 95.2 kg

DRUGS (3)
  1. HUMIRA [Suspect]
     Active Substance: ADALIMUMAB
     Indication: Crohn^s disease
     Route: 058
     Dates: start: 20151210, end: 2020
  2. HUMIRA [Suspect]
     Active Substance: ADALIMUMAB
     Route: 058
     Dates: start: 2020
  3. HUMIRA [Suspect]
     Active Substance: ADALIMUMAB
     Indication: Crohn^s disease
     Route: 058
     Dates: end: 20220707

REACTIONS (12)
  - Intestinal fistula [Unknown]
  - Intestinal resection [Unknown]
  - Postoperative abscess [Not Recovered/Not Resolved]
  - Post procedural complication [Unknown]
  - Malaise [Unknown]
  - Anal fissure [Unknown]
  - Feeling abnormal [Unknown]
  - Arthritis [Unknown]
  - Fistula [Unknown]
  - Diarrhoea [Unknown]
  - COVID-19 [Unknown]
  - Crohn^s disease [Unknown]

NARRATIVE: CASE EVENT DATE: 20200101
